FAERS Safety Report 9937691 (Version 1)
Quarter: 2014Q1

REPORT INFORMATION
  Report Type: Report from Study
  Country: US (occurrence: US)
  Receive Date: 20140303
  Receipt Date: 20140303
  Transmission Date: 20141002
  Serious: Yes (Hospitalization, Other)
  Sender: FDA-Public Use
  Company Number: US-ROCHE-1353719

PATIENT
  Sex: Female

DRUGS (13)
  1. XOLAIR [Suspect]
     Indication: ASTHMA
     Route: 058
  2. XOLAIR [Suspect]
     Indication: RHINITIS ALLERGIC
  3. KENALOG (UNITED STATES) [Concomitant]
  4. ALBUTEROL [Concomitant]
  5. FLONASE [Concomitant]
     Route: 065
  6. FLOVENT HFA [Concomitant]
     Route: 065
  7. FOSAMAX [Concomitant]
     Route: 065
  8. PREDNISONE [Concomitant]
     Route: 065
  9. SPIRIVA HANDIHALER [Concomitant]
     Route: 065
  10. VICODIN [Concomitant]
     Route: 065
  11. ZYRTEC [Concomitant]
     Route: 065
  12. CETRIZINE [Concomitant]
     Route: 065
  13. PATADAY [Concomitant]

REACTIONS (17)
  - Asthma [Unknown]
  - Dry skin [Unknown]
  - Headache [Unknown]
  - Fatigue [Unknown]
  - Vomiting [Unknown]
  - Nausea [Unknown]
  - Palpitations [Unknown]
  - Adrenal insufficiency [Unknown]
  - Chronic obstructive pulmonary disease [Unknown]
  - Conjunctivitis allergic [Unknown]
  - Nasal polyps [Unknown]
  - Vasomotor rhinitis [Unknown]
  - Tremor [Unknown]
  - Paraesthesia [Unknown]
  - Eye allergy [Unknown]
  - Rhinorrhoea [Unknown]
  - Sinus headache [Unknown]
